FAERS Safety Report 13647117 (Version 3)
Quarter: 2017Q3

REPORT INFORMATION
  Report Type: Report from Study
  Country: US (occurrence: CA)
  Receive Date: 20170613
  Receipt Date: 20170808
  Transmission Date: 20171127
  Serious: Yes (Other)
  Sender: FDA-Public Use
  Company Number: US-SUNOVION-2017SUN002040

PATIENT
  Age: 84 Year
  Sex: Female

DRUGS (21)
  1. XOLAIR [Suspect]
     Active Substance: OMALIZUMAB
     Dosage: UNK REGIMEN #7
     Route: 058
     Dates: start: 20170601
  2. PREDNISONE. [Concomitant]
     Active Substance: PREDNISONE
  3. VENTOLIN [Concomitant]
     Active Substance: ALBUTEROL SULFATE
  4. ADVAIR HFA [Concomitant]
     Active Substance: FLUTICASONE PROPIONATE\SALMETEROL XINAFOATE
     Dosage: 250 ?G, UNK
  5. RISEDRONATE [Concomitant]
     Active Substance: RISEDRONATE SODIUM
     Dosage: 35 MG, UNK
  6. GLYCOPYRROLATE. [Suspect]
     Active Substance: GLYCOPYRROLATE
     Indication: ASTHMA
     Dosage: 50 MG, QD
     Route: 055
     Dates: start: 201406
  7. XOLAIR [Suspect]
     Active Substance: OMALIZUMAB
     Indication: ASTHMA
     Dosage: 375 MG, BIW
     Route: 058
     Dates: start: 20170310
  8. XOLAIR [Suspect]
     Active Substance: OMALIZUMAB
     Dosage: UNK; REGIMEN #9
     Route: 058
     Dates: start: 20170713
  9. ATORVASTATIN [Concomitant]
     Active Substance: ATORVASTATIN
     Dosage: 10 MG, UNK
  10. XOLAIR [Suspect]
     Active Substance: OMALIZUMAB
     Dosage: UNK REGIMEN #2
     Route: 058
     Dates: start: 201703
  11. XOLAIR [Suspect]
     Active Substance: OMALIZUMAB
     Dosage: UNK REGIMEN #5
     Route: 058
     Dates: start: 20170504
  12. AVAMIS [Concomitant]
  13. XOLAIR [Suspect]
     Active Substance: OMALIZUMAB
     Dosage: UNK REGIMEN #4
     Route: 058
     Dates: start: 20170421
  14. REACTINE [Concomitant]
     Active Substance: CETIRIZINE HYDROCHLORIDE
     Dosage: 5 MG, UNK
  15. XOLAIR [Suspect]
     Active Substance: OMALIZUMAB
     Dosage: UNK REGIMEN #6
     Route: 058
     Dates: start: 20170518
  16. SINGULAIR [Concomitant]
     Active Substance: MONTELUKAST SODIUM
     Dosage: 10 MG, UNK
  17. HYDRASENSE [Concomitant]
     Active Substance: SEA WATER
  18. HYDROCHLOROTHIAZIDE. [Concomitant]
     Active Substance: HYDROCHLOROTHIAZIDE
     Dosage: 25 MG, UNK
  19. XOLAIR [Suspect]
     Active Substance: OMALIZUMAB
     Dosage: UNK REGIMEN #3
     Route: 058
     Dates: start: 20170407
  20. XOLAIR [Suspect]
     Active Substance: OMALIZUMAB
     Dosage: UNK, REGIMEN #8
     Route: 058
     Dates: start: 20170615
  21. AMLODIPINE [Concomitant]
     Active Substance: AMLODIPINE BESYLATE
     Dosage: 10 MG, UNK

REACTIONS (10)
  - Dysphonia [Recovering/Resolving]
  - Product use in unapproved indication [Unknown]
  - Asthenia [Unknown]
  - Productive cough [Unknown]
  - Asphyxia [Unknown]
  - Sputum discoloured [Unknown]
  - Heart rate increased [Unknown]
  - Hypertension [Unknown]
  - Dyspnoea [Unknown]
  - Fatigue [Unknown]

NARRATIVE: CASE EVENT DATE: 20170310
